FAERS Safety Report 10528011 (Version 1)
Quarter: 2014Q4

REPORT INFORMATION
  Report Type: Spontaneous
  Country: US (occurrence: US)
  Receive Date: 20141020
  Receipt Date: 20141020
  Transmission Date: 20150528
  Serious: Yes (Other)
  Sender: FDA-Public Use
  Company Number: US-ELI_LILLY_AND_COMPANY-US201410005276

PATIENT
  Age: 79 Year
  Sex: Male

DRUGS (9)
  1. PERPHENAZINE. [Suspect]
     Active Substance: PERPHENAZINE
     Indication: DELUSION
     Dosage: 10 MG, QD
     Route: 065
  2. PROZAC [Suspect]
     Active Substance: FLUOXETINE HYDROCHLORIDE
     Dosage: 20 MG, QD
     Route: 065
  3. BENZTROPINE [Suspect]
     Active Substance: BENZTROPINE
     Indication: PRODUCT USED FOR UNKNOWN INDICATION
     Dosage: 0.5 MG, BID
     Route: 065
  4. LITHIUM [Suspect]
     Active Substance: LITHIUM CARBONATE
     Indication: BIPOLAR II DISORDER
     Route: 065
  5. DESIPRAMINE [Suspect]
     Active Substance: DESIPRAMINE
     Dosage: 150 MG, QD
     Route: 065
  6. DESIPRAMINE [Suspect]
     Active Substance: DESIPRAMINE
     Indication: PRODUCT USED FOR UNKNOWN INDICATION
     Route: 065
  7. PROZAC [Suspect]
     Active Substance: FLUOXETINE HYDROCHLORIDE
     Indication: DEPRESSION
     Dosage: 10 MG, QD
     Route: 065
  8. PERPHENAZINE. [Suspect]
     Active Substance: PERPHENAZINE
     Dosage: 4 MG, QD
     Route: 065
  9. PROZAC [Suspect]
     Active Substance: FLUOXETINE HYDROCHLORIDE
     Dosage: 40 MG, QD
     Route: 065

REACTIONS (3)
  - Akathisia [Unknown]
  - Delirium [Recovered/Resolved]
  - Cogwheel rigidity [Unknown]
